FAERS Safety Report 9402614 (Version 1)
Quarter: 2013Q3

REPORT INFORMATION
  Report Type: Spontaneous
  Country: JP (occurrence: JP)
  Receive Date: 20130716
  Receipt Date: 20130716
  Transmission Date: 20140515
  Serious: Yes (Other)
  Sender: FDA-Public Use
  Company Number: PHHY2013JP073804

PATIENT
  Age: 66 Year
  Sex: Male

DRUGS (6)
  1. OXALIPLATIN [Suspect]
     Indication: METASTASES TO LIVER
  2. IRINOTECAN [Suspect]
     Indication: METASTASES TO LIVER
     Dates: end: 201007
  3. FOLINIC ACID [Suspect]
     Indication: METASTASES TO LIVER
     Dates: end: 201007
  4. 5-FLUOROURACIL [Suspect]
     Indication: METASTASES TO LIVER
     Dates: end: 201007
  5. TS-1 [Suspect]
     Indication: METASTASES TO LIVER
  6. BEVACIZUMAB [Suspect]
     Indication: METASTASES TO LIVER

REACTIONS (5)
  - Neuropathy peripheral [Recovering/Resolving]
  - Hypoaesthesia [Recovering/Resolving]
  - Breakthrough pain [Recovering/Resolving]
  - Limb discomfort [Recovering/Resolving]
  - Pigmentation disorder [Unknown]
